FAERS Safety Report 4785098-3 (Version None)
Quarter: 2005Q3

REPORT INFORMATION
  Report Type: 
  Country: None (occurrence: None)
  Receive Date: 20050928
  Receipt Date: 20050915
  Transmission Date: 20060218
  Serious: Yes (Hospitalization)
  Sender: FDA-Public Use
  Company Number: 2005130898

PATIENT
  Age: 77 Year
  Sex: Female

DRUGS (3)
  1. CELEBREX [Suspect]
     Indication: ILL-DEFINED DISORDER
     Dosage: 1DOSE FORM (1 D), ORAL
     Route: 048
     Dates: end: 20050310
  2. CLONAZEPAM [Suspect]
     Indication: ILL-DEFINED DISORDER
     Dosage: ORAL
     Route: 048
  3. ACTONEL [Suspect]
     Indication: OSTEOPOROSIS
     Dosage: 1DOSE FORM, ORAL
     Route: 048

REACTIONS (1)
  - PERIPHERAL ISCHAEMIA [None]
